FAERS Safety Report 5507151-9 (Version None)
Quarter: 2007Q4

REPORT INFORMATION
  Report Type: 
  Country: None (occurrence: None)
  Receive Date: 20071105
  Receipt Date: 20071024
  Transmission Date: 20080405
  Serious: Yes (Death, Life-Threatening, Hospitalization, Disabling)
  Sender: FDA-Public Use
  Company Number: SE-GENENTECH-238105

PATIENT
  Sex: Male
  Weight: 87 kg

DRUGS (5)
  1. OCRELIZUMAB [Suspect]
     Indication: NON-HODGKIN'S LYMPHOMA
     Dosage: 200 MG/M2, Q3W
     Route: 042
     Dates: start: 20050616, end: 20050727
  2. MABTHERA [Suspect]
     Indication: DRUG USE FOR UNKNOWN INDICATION
     Dates: start: 20040428
  3. ALLOPURINOL [Concomitant]
     Indication: DRUG USE FOR UNKNOWN INDICATION
     Dates: start: 20050616
  4. CHLORAMBUCIL [Concomitant]
     Indication: DRUG USE FOR UNKNOWN INDICATION
     Dates: start: 20040923
  5. FLUDARABINE PHOSPHATE [Concomitant]
     Indication: NON-HODGKIN'S LYMPHOMA
     Dosage: UNK, UNK
     Dates: start: 20051101

REACTIONS (2)
  - OBLITERATIVE BRONCHIOLITIS [None]
  - PULMONARY EMBOLISM [None]
